FAERS Safety Report 26202196 (Version 1)
Quarter: 2025Q4

REPORT INFORMATION
  Report Type: Spontaneous
  Country: US (occurrence: US)
  Receive Date: 20251226
  Receipt Date: 20251226
  Transmission Date: 20260117
  Serious: No
  Sender: SANOFI AVENTIS
  Company Number: US-SA-2025SA384311

PATIENT
  Sex: Male

DRUGS (12)
  1. DUPIXENT [Suspect]
     Active Substance: DUPILUMAB
     Indication: Urticaria
     Dosage: 300 MG, QOW
     Route: 058
  2. CLOMIPHENE [Concomitant]
     Active Substance: CLOMIPHENE
  3. FLUOCINOLONE [Concomitant]
     Active Substance: FLUOCINOLONE
  4. GABAPENTIN [Concomitant]
     Active Substance: GABAPENTIN
  5. HYDROXYZINE [Concomitant]
     Active Substance: HYDROXYZINE HYDROCHLORIDE
  6. IRON [Concomitant]
     Active Substance: IRON
  7. LOVASTATIN [Concomitant]
     Active Substance: LOVASTATIN
  8. METOPROLOL [Concomitant]
     Active Substance: METOPROLOL
  9. MONTELUKAST [Concomitant]
     Active Substance: MONTELUKAST
  10. VITAMINS [Concomitant]
     Active Substance: VITAMINS
  11. Triamcinolon [Concomitant]
  12. VITAMIN C [Concomitant]
     Active Substance: ASCORBIC ACID

REACTIONS (3)
  - Erythema [Recovering/Resolving]
  - Pruritus [Recovering/Resolving]
  - Drug ineffective for unapproved indication [Unknown]
